FAERS Safety Report 19951283 (Version 4)
Quarter: 2022Q2

REPORT INFORMATION
  Report Type: Spontaneous
  Country: US (occurrence: US)
  Receive Date: 20211013
  Receipt Date: 20220503
  Transmission Date: 20220721
  Serious: Yes (Hospitalization)
  Sender: FDA-Public Use
  Company Number: US-PFIZER INC-202101341547

PATIENT
  Age: 57 Year
  Sex: Female

DRUGS (3)
  1. XELJANZ [Suspect]
     Active Substance: TOFACITINIB CITRATE
     Indication: Rheumatoid arthritis
     Dosage: 5 MG, 2X/DAY
     Route: 048
     Dates: start: 2018
  2. XELJANZ [Suspect]
     Active Substance: TOFACITINIB CITRATE
     Dosage: 5 MG, 2X/DAY
     Route: 048
  3. TRAMADOL [Concomitant]
     Active Substance: TRAMADOL
     Indication: Inflammation
     Dosage: UNK

REACTIONS (7)
  - Knee operation [Unknown]
  - Gait disturbance [Unknown]
  - Drug ineffective [Unknown]
  - Pain in extremity [Unknown]
  - Peripheral swelling [Unknown]
  - Product dose omission issue [Unknown]
  - Medication error [Unknown]

NARRATIVE: CASE EVENT DATE: 20210915
